FAERS Safety Report 9620314 (Version 2)
Quarter: 2013Q4

REPORT INFORMATION
  Report Type: Spontaneous
  Country: US (occurrence: US)
  Receive Date: 20131014
  Receipt Date: 20131014
  Transmission Date: 20140711
  Serious: No
  Sender: FDA-Public Use
  Company Number: US-ALLERGAN-1300439US

PATIENT
  Age: 80 Year
  Sex: Female

DRUGS (2)
  1. ALPHAGAN P [Suspect]
     Indication: GLAUCOMA
     Dosage: 2 GTT, BID
     Route: 047
     Dates: start: 201203
  2. SYSTANE [Concomitant]
     Indication: DRY EYE
     Dosage: UNK UNK, PRN

REACTIONS (8)
  - Rash erythematous [Recovering/Resolving]
  - Rash pruritic [Recovering/Resolving]
  - Rash papular [Recovering/Resolving]
  - Eyelid margin crusting [Recovered/Resolved]
  - Inappropriate schedule of drug administration [Unknown]
  - Lacrimation increased [Recovered/Resolved]
  - Erythema of eyelid [Unknown]
  - Ocular hyperaemia [Recovered/Resolved]
